FAERS Safety Report 7775226-X (Version None)
Quarter: 2011Q3

REPORT INFORMATION
  Report Type: 
  Country: None (occurrence: None)
  Receive Date: 20110923
  Receipt Date: 20110920
  Transmission Date: 20111222
  Serious: Yes (Hospitalization, Other)
  Sender: FDA-Public Use
  Company Number: US-MERCK-1107USA03267

PATIENT
  Age: 60 Year
  Sex: Female

DRUGS (8)
  1. IMITREX [Concomitant]
     Route: 065
     Dates: start: 20040101
  2. CORTICOSTEROIDS (UNSPECIFIED) [Concomitant]
     Route: 065
     Dates: start: 19900101, end: 20100101
  3. MELOXICAM [Concomitant]
     Route: 065
     Dates: start: 20080101
  4. FOSAMAX [Suspect]
     Indication: OSTEOPENIA
     Route: 048
     Dates: start: 20050101, end: 20100201
  5. CELEBREX [Concomitant]
     Route: 065
     Dates: start: 20050101
  6. OMEPRAZOLE [Concomitant]
     Route: 065
     Dates: start: 20040101
  7. ADVAIR DISKUS 100/50 [Concomitant]
     Route: 065
     Dates: start: 20000101
  8. SINGULAIR [Concomitant]
     Route: 065
     Dates: start: 20000101

REACTIONS (7)
  - GASTROOESOPHAGEAL REFLUX DISEASE [None]
  - FOOT FRACTURE [None]
  - VITAMIN D DEFICIENCY [None]
  - DEVICE FAILURE [None]
  - FRACTURE NONUNION [None]
  - BLOOD CHOLESTEROL INCREASED [None]
  - FEMUR FRACTURE [None]
